FAERS Safety Report 10419734 (Version 1)
Quarter: 2014Q3

REPORT INFORMATION
  Report Type: Spontaneous
  Country: GB (occurrence: GB)
  Receive Date: 20140829
  Receipt Date: 20140829
  Transmission Date: 20150326
  Serious: Yes (Other)
  Sender: FDA-Public Use
  Company Number: GB-BRISTOL-MYERS SQUIBB COMPANY-21324066

PATIENT
  Age: 57 Year
  Sex: Male
  Weight: 84 kg

DRUGS (15)
  1. GLICLAZIDE [Concomitant]
     Active Substance: GLICLAZIDE
  2. EXENATIDE [Suspect]
     Active Substance: EXENATIDE
     Dosage: 27MAY-28MAY2014(1DAY):?06AUG2014 -
     Dates: start: 20140527
  3. BENDROFLUMETHIAZIDE [Concomitant]
     Active Substance: BENDROFLUMETHIAZIDE
  4. CODEINE PHOSPHATE [Concomitant]
     Active Substance: CODEINE PHOSPHATE
  5. DOXAZOSIN [Concomitant]
     Active Substance: DOXAZOSIN\DOXAZOSIN MESYLATE
  6. ZOMORPH [Concomitant]
     Active Substance: MORPHINE SULFATE
  7. ATENOLOL. [Concomitant]
     Active Substance: ATENOLOL
  8. LOSARTAN [Concomitant]
     Active Substance: LOSARTAN
  9. METFORMIN [Concomitant]
     Active Substance: METFORMIN HYDROCHLORIDE
  10. MORPHINE SULFATE. [Concomitant]
     Active Substance: MORPHINE SULFATE
  11. NEFOPAM HCL [Concomitant]
     Active Substance: NEFOPAM
  12. FORTISIP [Concomitant]
     Active Substance: CARBOHYDRATES\FATTY ACIDS\MINERALS\PROTEIN\VITAMINS
  13. OMEPRAZOLE. [Concomitant]
     Active Substance: OMEPRAZOLE
  14. SIMVASTATIN. [Concomitant]
     Active Substance: SIMVASTATIN
  15. CITALOPRAM [Concomitant]
     Active Substance: CITALOPRAM HYDROBROMIDE

REACTIONS (1)
  - Pancreatic carcinoma [Not Recovered/Not Resolved]

NARRATIVE: CASE EVENT DATE: 20140806
